FAERS Safety Report 10222764 (Version 1)
Quarter: 2014Q2

REPORT INFORMATION
  Report Type: Spontaneous
  Country: AU (occurrence: AU)
  Receive Date: 20140606
  Receipt Date: 20140606
  Transmission Date: 20141212
  Serious: Yes (Hospitalization)
  Sender: FDA-Public Use
  Company Number: AU-BRISTOL-MYERS SQUIBB COMPANY-20675286

PATIENT
  Sex: Female

DRUGS (2)
  1. FORXIGA [Suspect]
     Route: 048
  2. METFORMIN HCL [Suspect]

REACTIONS (2)
  - Dizziness [Recovered/Resolved]
  - Urinary tract infection [Recovered/Resolved]
